FAERS Safety Report 6739877-3 (Version None)
Quarter: 2010Q2

REPORT INFORMATION
  Report Type: 
  Country: None (occurrence: None)
  Receive Date: 20100521
  Receipt Date: 20100507
  Transmission Date: 20101027
  Serious: Yes (Other)
  Sender: FDA-Public Use
  Company Number: 8047848

PATIENT
  Sex: Female
  Weight: 100 kg

DRUGS (12)
  1. CERTOLIZUMAB PEGOL (CERTOLIZUMAB PEGOL) [Suspect]
     Indication: RHEUMATOID ARTHRITIS
     Dosage: (400 MG 1X/2 WEEKS, -NR OF DOSES :26 SUBCUTANEOUS), (400 MG 1X/2 WEEKS SUBCUTANEOUS), (200 MG 1X/2 W
     Route: 058
     Dates: start: 20050531, end: 20060516
  2. CERTOLIZUMAB PEGOL (CERTOLIZUMAB PEGOL) [Suspect]
     Indication: RHEUMATOID ARTHRITIS
     Dosage: (400 MG 1X/2 WEEKS, -NR OF DOSES :26 SUBCUTANEOUS), (400 MG 1X/2 WEEKS SUBCUTANEOUS), (200 MG 1X/2 W
     Route: 058
     Dates: start: 20060530, end: 20071113
  3. CERTOLIZUMAB PEGOL (CERTOLIZUMAB PEGOL) [Suspect]
     Indication: RHEUMATOID ARTHRITIS
     Dosage: (400 MG 1X/2 WEEKS, -NR OF DOSES :26 SUBCUTANEOUS), (400 MG 1X/2 WEEKS SUBCUTANEOUS), (200 MG 1X/2 W
     Route: 058
     Dates: start: 20071127, end: 20080610
  4. CERTOLIZUMAB PEGOL (CERTOLIZUMAB PEGOL) [Suspect]
     Indication: RHEUMATOID ARTHRITIS
     Dosage: (400 MG 1X/2 WEEKS, -NR OF DOSES :26 SUBCUTANEOUS), (400 MG 1X/2 WEEKS SUBCUTANEOUS), (200 MG 1X/2 W
     Route: 058
     Dates: start: 20080625, end: 20090414
  5. CERTOLIZUMAB PEGOL (CERTOLIZUMAB PEGOL) [Suspect]
     Indication: RHEUMATOID ARTHRITIS
     Dosage: (400 MG 1X/2 WEEKS, -NR OF DOSES :26 SUBCUTANEOUS), (400 MG 1X/2 WEEKS SUBCUTANEOUS), (200 MG 1X/2 W
     Route: 058
     Dates: start: 20090526, end: 20090609
  6. METHOTRAXATE [Concomitant]
  7. MELOXICAM [Concomitant]
  8. METHYLPREDNISOLON /00049601/ [Concomitant]
  9. LOGEST /00000701/ [Concomitant]
  10. QUINAPRIL [Concomitant]
  11. SYMBICORT [Concomitant]
  12. FERROUS SULFATE TAB [Concomitant]

REACTIONS (3)
  - BRONCHITIS [None]
  - LUNG DISORDER [None]
  - TUBERCULOSIS [None]
